FAERS Safety Report 23021792 (Version 3)
Quarter: 2023Q4

REPORT INFORMATION
  Report Type: Spontaneous
  Country: IE (occurrence: IE)
  Receive Date: 20231003
  Receipt Date: 20231010
  Transmission Date: 20240110
  Serious: Yes (Other)
  Sender: FDA-Public Use
  Company Number: IE-PFIZER INC-202300305449

PATIENT
  Age: 3 Year

DRUGS (5)
  1. ITRACONAZOLE [Interacting]
     Active Substance: ITRACONAZOLE
     Indication: Antifungal prophylaxis
     Dosage: 5 MG/KG, 1X/DAY, 21 DAYS
     Route: 048
  2. VINCRISTINE SULFATE [Suspect]
     Active Substance: VINCRISTINE SULFATE
     Indication: Acute lymphocytic leukaemia
     Dosage: D1, 8, 15, 22
     Route: 065
  3. ASPARAGINASE [Concomitant]
     Active Substance: ASPARAGINASE
     Indication: Product used for unknown indication
     Route: 065
  4. PREDNISOLONE [Concomitant]
     Active Substance: PREDNISOLONE
     Indication: Product used for unknown indication
     Dosage: UNK, DAILY
     Route: 065
  5. DAUNORUBICIN [Concomitant]
     Active Substance: DAUNORUBICIN
     Indication: Product used for unknown indication
     Route: 065

REACTIONS (18)
  - Ileus [Recovered/Resolved]
  - Arrhythmia [Recovered/Resolved]
  - Drug interaction [Recovered/Resolved]
  - Neurotoxicity [Recovered/Resolved]
  - Ileus paralytic [Recovered/Resolved]
  - Inappropriate antidiuretic hormone secretion [Recovered/Resolved]
  - Intestinal perforation [Recovered/Resolved]
  - Acute abdomen [Recovered/Resolved]
  - Alanine aminotransferase increased [Recovered/Resolved]
  - Gait disturbance [Recovered/Resolved]
  - Aspartate aminotransferase increased [Recovered/Resolved]
  - Eyelid ptosis [Recovered/Resolved]
  - Depression [Recovered/Resolved]
  - Muscular weakness [Recovered/Resolved]
  - Hypertension [Recovered/Resolved]
  - Abdominal pain [Recovered/Resolved]
  - Hyponatraemia [Recovered/Resolved]
  - Areflexia [Recovered/Resolved]
